FAERS Safety Report 9607286 (Version 1)
Quarter: 2013Q4

REPORT INFORMATION
  Report Type: Spontaneous
  Country: US (occurrence: US)
  Receive Date: 20131009
  Receipt Date: 20131009
  Transmission Date: 20140711
  Serious: Yes (Hospitalization, Other)
  Sender: FDA-Public Use
  Company Number: US-TEVA-436499USA

PATIENT
  Age: 59 Year
  Sex: Female
  Weight: 69.92 kg

DRUGS (12)
  1. GLIBENCLAMIDE [Suspect]
     Indication: DIABETES MELLITUS
     Route: 048
     Dates: start: 20130612, end: 2013
  2. METFORMIN [Suspect]
     Indication: DIABETES MELLITUS
     Route: 048
     Dates: start: 20130612, end: 2013
  3. BACTRIM [Suspect]
     Indication: DIABETES MELLITUS
     Dosage: 800/160 MG
     Route: 048
     Dates: start: 20130612, end: 2013
  4. AMLODIPINE [Concomitant]
  5. LOSARTAN POTASSIUM W/HYDROCHLOROTHIAZIDE [Concomitant]
     Dosage: 50/12.5 MG DAILY
  6. BABY ASPIRIN [Concomitant]
  7. FISH OIL [Concomitant]
  8. FEXOFENADINE HYDROCHLORIDE [Concomitant]
  9. MAGNESIUM [Concomitant]
  10. CENTRUM SILVER WOMEN^S 50+ [Concomitant]
  11. GEMFIBROZIL [Concomitant]
     Dosage: 1200 MILLIGRAM DAILY;
  12. CELEBREX [Concomitant]
     Indication: ARTHRITIS
     Dosage: 200 MILLIGRAM DAILY;
     Route: 048

REACTIONS (4)
  - Hypophagia [Unknown]
  - Shock hypoglycaemic [Unknown]
  - Loss of consciousness [Unknown]
  - Drooling [Unknown]
